FAERS Safety Report 9586288 (Version 2)
Quarter: 2013Q4

REPORT INFORMATION
  Report Type: Report from Study
  Country: NL (occurrence: NL)
  Receive Date: 20131003
  Receipt Date: 20131014
  Transmission Date: 20140711
  Serious: Yes (Death, Other)
  Sender: FDA-Public Use
  Company Number: PHHY2013NL109893

PATIENT
  Age: 82 Year
  Sex: Male

DRUGS (2)
  1. ZOMETA [Suspect]
     Indication: PROSTATE CANCER METASTATIC
     Dosage: 4 MG, ONCE PER 3 WEEKS
     Route: 042
     Dates: start: 20120712
  2. ZOMETA [Suspect]
     Dosage: UNK UKN, UNK
     Dates: start: 20130910

REACTIONS (2)
  - Prostate cancer metastatic [Fatal]
  - Coma [Unknown]
